FAERS Safety Report 18137842 (Version 1)
Quarter: 2020Q3

REPORT INFORMATION
  Report Type: Spontaneous
  Country: US (occurrence: US)
  Receive Date: 20200812
  Receipt Date: 20200812
  Transmission Date: 20201103
  Serious: Yes (Other)
  Sender: FDA-Public Use
  Company Number: US-SA-2020SA206444

PATIENT

DRUGS (4)
  1. DUPILUMAB [Suspect]
     Active Substance: DUPILUMAB
     Dosage: 300 MG (2ML), QOW
  2. DUPILUMAB [Suspect]
     Active Substance: DUPILUMAB
     Indication: CUTANEOUS T-CELL LYMPHOMA
     Dosage: 600 MG, 1X
  3. CLOBETASOL [Concomitant]
     Active Substance: CLOBETASOL
     Indication: CUTANEOUS T-CELL LYMPHOMA
     Dosage: UNK
     Route: 061
  4. TACROLIMUS. [Concomitant]
     Active Substance: TACROLIMUS
     Indication: CUTANEOUS T-CELL LYMPHOMA
     Dosage: UNK

REACTIONS (12)
  - Skin erosion [Unknown]
  - Skin plaque [Unknown]
  - Condition aggravated [Unknown]
  - Cutaneous T-cell lymphoma stage II [Unknown]
  - Unintentional use for unapproved indication [Unknown]
  - Skin weeping [Unknown]
  - Skin hyperpigmentation [Unknown]
  - Skin mass [Unknown]
  - Dermatitis psoriasiform [Unknown]
  - Rash erythematous [Unknown]
  - Rash [Unknown]
  - Parakeratosis [Unknown]
